FAERS Safety Report 8125456-2 (Version None)
Quarter: 2012Q1

REPORT INFORMATION
  Report Type: 
  Country: None (occurrence: None)
  Receive Date: 20120209
  Receipt Date: 20120206
  Transmission Date: 20120608
  Serious: Yes (Other)
  Sender: FDA-Public Use
  Company Number: US-PFIZER INC-2012032392

PATIENT
  Sex: Male
  Weight: 68.027 kg

DRUGS (2)
  1. PHENOBARBITAL [Concomitant]
     Dosage: UNK
  2. DILANTIN [Suspect]
     Indication: CONVULSION
     Dosage: 100 MG, 3X/DAY
     Route: 048
     Dates: start: 19560101

REACTIONS (1)
  - CONVULSION [None]
